FAERS Safety Report 7290617-1 (Version None)
Quarter: 2011Q1

REPORT INFORMATION
  Report Type: 
  Country: None (occurrence: None)
  Receive Date: 20110214
  Receipt Date: 20110207
  Transmission Date: 20110831
  Serious: Yes (Other)
  Sender: FDA-Public Use
  Company Number: CA-JNJFOC-20110202668

PATIENT
  Sex: Female
  Weight: 63.5 kg

DRUGS (2)
  1. TYLENOL W/ CODEINE NO. 3 [Suspect]
     Indication: MIGRAINE
     Dosage: 2 TABLETS AS REQUIRED
     Route: 048
  2. AXERT [Suspect]
     Indication: MIGRAINE
     Route: 048

REACTIONS (2)
  - HYPERTENSION [None]
  - HEART RATE INCREASED [None]
